FAERS Safety Report 8083867-8 (Version None)
Quarter: 2012Q1

REPORT INFORMATION
  Report Type: 
  Country: None (occurrence: None)
  Receive Date: 20120128
  Receipt Date: 20110204
  Transmission Date: 20120608
  Serious: No
  Sender: FDA-Public Use
  Company Number: US-ABBOTT-11P-163-0703162-00

PATIENT
  Sex: Female

DRUGS (3)
  1. HUMIRA [Suspect]
     Indication: RHEUMATOID ARTHRITIS
     Dates: start: 20100801, end: 20101201
  2. HUMIRA [Suspect]
     Dates: start: 20110101
  3. HUMIRA [Suspect]
     Dates: start: 20101201, end: 20110101

REACTIONS (2)
  - NASOPHARYNGITIS [None]
  - INFLUENZA LIKE ILLNESS [None]
